FAERS Safety Report 13140484 (Version 1)
Quarter: 2017Q1

REPORT INFORMATION
  Report Type: Spontaneous
  Country: US (occurrence: US)
  Receive Date: 20170123
  Receipt Date: 20170123
  Transmission Date: 20170428
  Serious: No
  Sender: FDA-Public Use
  Company Number: US-UNITED THERAPEUTICS-UNT-2016-017151

PATIENT
  Age: 63 Year
  Sex: Female
  Weight: 58.96 kg

DRUGS (6)
  1. TYVASO [Suspect]
     Active Substance: TREPROSTINIL
     Dosage: UNK
  2. ADCIRCA [Concomitant]
     Active Substance: TADALAFIL
     Indication: PRODUCT USED FOR UNKNOWN INDICATION
  3. TRACLEER [Concomitant]
     Active Substance: BOSENTAN
     Indication: PRODUCT USED FOR UNKNOWN INDICATION
  4. COUMADIN [Concomitant]
     Active Substance: WARFARIN SODIUM
     Indication: PRODUCT USED FOR UNKNOWN INDICATION
  5. TYVASO [Suspect]
     Active Substance: TREPROSTINIL
     Indication: PULMONARY HYPERTENSION
     Dosage: 18-54 MICROGRAMS, QID
     Dates: start: 20161031
  6. TYVASO [Suspect]
     Active Substance: TREPROSTINIL
     Dosage: UNK

REACTIONS (10)
  - Headache [Unknown]
  - Dysgeusia [Recovered/Resolved]
  - Cough [Not Recovered/Not Resolved]
  - Throat irritation [Recovered/Resolved]
  - Cyanosis [Unknown]
  - Bronchitis [Not Recovered/Not Resolved]
  - Blood iron decreased [Unknown]
  - Oxygen saturation decreased [Unknown]
  - Hypoaesthesia [Recovered/Resolved]
  - Yellow skin [Unknown]

NARRATIVE: CASE EVENT DATE: 201611
